FAERS Safety Report 10343115 (Version 1)
Quarter: 2014Q3

REPORT INFORMATION
  Report Type: Spontaneous
  Country: DE (occurrence: DE)
  Receive Date: 20140725
  Receipt Date: 20140725
  Transmission Date: 20150326
  Serious: Yes (Other)
  Sender: FDA-Public Use
  Company Number: DE-INCYTE CORPORATION-2014IN002044

PATIENT

DRUGS (2)
  1. INC424 [Suspect]
     Active Substance: RUXOLITINIB
     Indication: NEOPLASM
     Dosage: 15 MG, BID
     Route: 065
  2. INC424 [Suspect]
     Active Substance: RUXOLITINIB
     Dosage: 20 MG, BID
     Route: 065

REACTIONS (3)
  - Haemoglobin decreased [Unknown]
  - Neoplasm progression [Unknown]
  - Platelet count increased [Unknown]
